FAERS Safety Report 7877417-6 (Version None)
Quarter: 2011Q4

REPORT INFORMATION
  Report Type: 
  Country: None (occurrence: None)
  Receive Date: 20111031
  Receipt Date: 20111025
  Transmission Date: 20120403
  Serious: Yes (Hospitalization, Other)
  Sender: FDA-Public Use
  Company Number: US-ROXANE LABORATORIES, INC.-2011-RO-01538RO

PATIENT
  Age: 45 Year
  Sex: Female

DRUGS (3)
  1. MYCOPHENOLATE MOFETIL [Suspect]
     Indication: IMMUNOSUPPRESSANT DRUG THERAPY
  2. PREDNISONE [Suspect]
     Indication: IMMUNOSUPPRESSANT DRUG THERAPY
  3. FLUCONAZOLE [Suspect]
     Indication: IMMUNOSUPPRESSANT DRUG THERAPY

REACTIONS (9)
  - HYPERKALAEMIA [None]
  - RENAL FAILURE ACUTE [None]
  - ENTEROBACTER INFECTION [None]
  - HYDRONEPHROSIS [None]
  - HYPOVOLAEMIA [None]
  - KIDNEY TRANSPLANT REJECTION [None]
  - HYPONATRAEMIA [None]
  - PYELONEPHRITIS [None]
  - METABOLIC ACIDOSIS [None]
